FAERS Safety Report 7817198-5 (Version None)
Quarter: 2011Q4

REPORT INFORMATION
  Report Type: 
  Country: None (occurrence: None)
  Receive Date: 20111017
  Receipt Date: 20111017
  Transmission Date: 20120403
  Serious: Yes (Congenital Anomaly, Other)
  Sender: FDA-Public Use
  Company Number: None

PATIENT
  Age: 22 Year
  Sex: Female
  Weight: 56.699 kg

DRUGS (1)
  1. SYNAREL [Suspect]
     Indication: ENDOMETRIOSIS
     Dosage: 1 INHALATION
     Route: 045
     Dates: start: 19910501, end: 19911130

REACTIONS (3)
  - BONE LOSS [None]
  - OSTEOPOROSIS [None]
  - MULTIPLE FRACTURES [None]
